FAERS Safety Report 8623038-7 (Version None)
Quarter: 2012Q3

REPORT INFORMATION
  Report Type: 
  Country: None (occurrence: None)
  Receive Date: 20120827
  Receipt Date: 20120816
  Transmission Date: 20120928
  Serious: Yes (Hospitalization)
  Sender: FDA-Public Use
  Company Number: FR-JNJFOC-20120809818

PATIENT
  Sex: Male

DRUGS (6)
  1. PREZISTA [Suspect]
     Indication: HIV INFECTION
     Dosage: 2 TABLETS AT 400 MG A DAY
     Route: 048
     Dates: start: 20120627, end: 20120704
  2. BACTRIM [Suspect]
     Indication: ANTIFUNGAL PROPHYLAXIS
     Dosage: 2 TABLETS A DAY
     Route: 048
     Dates: start: 20120612, end: 20120705
  3. FLUCONAZOLE [Suspect]
     Indication: OESOPHAGEAL CANDIDIASIS
     Dosage: 2 TABLETS A DAY
     Route: 048
     Dates: start: 20120608, end: 20120630
  4. COMBIVIR [Suspect]
     Indication: HIV INFECTION
     Dosage: 2 TABLETS A DAY
     Route: 048
     Dates: start: 20120627, end: 20120704
  5. SULFADIAZINE [Suspect]
     Indication: CEREBRAL TOXOPLASMOSIS
     Dosage: 2 TABLETS A DAY
     Route: 048
     Dates: start: 20120618, end: 20120709
  6. NORVIR [Suspect]
     Indication: HIV INFECTION
     Dosage: 2 TABLETS A DAY
     Route: 048
     Dates: start: 20120627, end: 20120704

REACTIONS (6)
  - HAEMOGLOBIN DECREASED [None]
  - DRUG RASH WITH EOSINOPHILIA AND SYSTEMIC SYMPTOMS [None]
  - BLOOD SODIUM DECREASED [None]
  - STEVENS-JOHNSON SYNDROME [None]
  - MYOCARDITIS [None]
  - BLOOD CREATININE INCREASED [None]
